FAERS Safety Report 4613594-8 (Version None)
Quarter: 2005Q1

REPORT INFORMATION
  Report Type: 
  Country: None (occurrence: None)
  Receive Date: 20050321
  Receipt Date: 20050308
  Transmission Date: 20050727
  Serious: Yes (Hospitalization, Other)
  Sender: FDA-Public Use
  Company Number: CA-JNJFOC-20050303230

PATIENT
  Sex: Male
  Weight: 7.29 kg

DRUGS (2)
  1. TYLENOL [Suspect]
     Route: 049
  2. TYLENOL [Suspect]
     Indication: DRUG USE FOR UNKNOWN INDICATION
     Route: 049

REACTIONS (5)
  - EMOTIONAL DISTRESS [None]
  - FOAMING AT MOUTH [None]
  - MEDICATION ERROR [None]
  - RETCHING [None]
  - SWOLLEN TONGUE [None]
